FAERS Safety Report 16787478 (Version 1)
Quarter: 2019Q3

REPORT INFORMATION
  Report Type: Spontaneous
  Country: US (occurrence: US)
  Receive Date: 20190909
  Receipt Date: 20190909
  Transmission Date: 20191005
  Serious: No
  Sender: FDA-Public Use
  Company Number: US-JNJFOC-20190906353

PATIENT
  Sex: Female
  Weight: 51.3 kg

DRUGS (1)
  1. INVEGA SUSTENNA [Suspect]
     Active Substance: PALIPERIDONE PALMITATE
     Indication: SCHIZOPHRENIA
     Route: 030
     Dates: start: 20190521, end: 20190718

REACTIONS (2)
  - Product dose omission [Unknown]
  - Drug level abnormal [Unknown]

NARRATIVE: CASE EVENT DATE: 2019
